FAERS Safety Report 19135033 (Version 2)
Quarter: 2021Q2

REPORT INFORMATION
  Report Type: Spontaneous
  Country: TH (occurrence: TH)
  Receive Date: 20210414
  Receipt Date: 20210503
  Transmission Date: 20210717
  Serious: Yes (Life-Threatening, Other)
  Sender: FDA-Public Use
  Company Number: TH-IGSA-BIG0013418

PATIENT
  Age: 54 Year
  Sex: Male
  Weight: 60 kg

DRUGS (13)
  1. HYDRALAZINE [Concomitant]
     Active Substance: HYDRALAZINE HYDROCHLORIDE
  2. DOXAZOSIN [Concomitant]
     Active Substance: DOXAZOSIN MESYLATE
  3. ALBUTEIN [Suspect]
     Active Substance: ALBUMIN HUMAN
     Indication: PLASMAPHERESIS
     Dosage: 20 GRAM, TOTAL
     Route: 042
     Dates: start: 20210203
  4. PREDNISOLONE. [Concomitant]
     Active Substance: PREDNISOLONE
  5. PROGRAF [Concomitant]
     Active Substance: TACROLIMUS
  6. SIMVAS [Concomitant]
  7. AMLOPINE [Concomitant]
     Active Substance: AMLODIPINE BESYLATE
  8. DILTIAZEM. [Concomitant]
     Active Substance: DILTIAZEM
  9. FOLIC [Concomitant]
     Active Substance: FOLIC ACID
  10. IMMUCEPT [Concomitant]
  11. SODIUM CHLORIDE. [Concomitant]
     Active Substance: SODIUM CHLORIDE
  12. FERROUS SULPHATE [FERROUS SULFATE] [Concomitant]
     Active Substance: FERROUS SULFATE
  13. ATENOLOL. [Concomitant]
     Active Substance: ATENOLOL

REACTIONS (5)
  - Syncope [Recovered/Resolved]
  - Urticaria [Recovered/Resolved]
  - Nausea [Recovered/Resolved]
  - Abdominal pain [Recovered/Resolved]
  - Hypotension [Recovered/Resolved]

NARRATIVE: CASE EVENT DATE: 20210203
